FAERS Safety Report 7652827-0 (Version None)
Quarter: 2011Q3

REPORT INFORMATION
  Report Type: 
  Country: None (occurrence: None)
  Receive Date: 20110802
  Receipt Date: 20110802
  Transmission Date: 20111222
  Serious: Yes (Other)
  Sender: FDA-Public Use
  Company Number: None

PATIENT
  Sex: Female
  Weight: 83.4619 kg

DRUGS (1)
  1. LEVAQUIN [Suspect]
     Indication: SINUSITIS
     Dosage: 500MG ONE HS X 10 DAYS BY MOUTH
     Route: 048
     Dates: start: 20110621

REACTIONS (2)
  - MUSCLE SPASMS [None]
  - DECREASED ACTIVITY [None]
